FAERS Safety Report 19274200 (Version 1)
Quarter: 2021Q2

REPORT INFORMATION
  Report Type: Spontaneous
  Country: US (occurrence: US)
  Receive Date: 20210519
  Receipt Date: 20210519
  Transmission Date: 20210717
  Serious: No
  Sender: FDA-Public Use
  Company Number: US-GLAXOSMITHKLINE-US2021103259

PATIENT
  Age: 77 Year
  Sex: Female

DRUGS (1)
  1. ARNUITY ELLIPTA [Suspect]
     Active Substance: FLUTICASONE FUROATE
     Indication: PRODUCT USED FOR UNKNOWN INDICATION
     Dosage: 100 UG, QD
     Route: 055
     Dates: start: 20201001

REACTIONS (6)
  - Oral pain [Not Recovered/Not Resolved]
  - Mouth swelling [Recovered/Resolved]
  - Stomatitis [Recovered/Resolved]
  - Tongue ulceration [Recovered/Resolved]
  - Oropharyngeal pain [Recovered/Resolved]
  - Glossodynia [Not Recovered/Not Resolved]

NARRATIVE: CASE EVENT DATE: 20201001
